FAERS Safety Report 5872279-0 (Version None)
Quarter: 2008Q3

REPORT INFORMATION
  Report Type: 
  Country: None (occurrence: None)
  Receive Date: 20080905
  Receipt Date: 20080827
  Transmission Date: 20090109
  Serious: Yes (Hospitalization)
  Sender: FDA-Public Use
  Company Number: US-MERCK-0808USA04907

PATIENT
  Sex: Female

DRUGS (2)
  1. COZAAR [Suspect]
     Route: 048
  2. BENICAR [Suspect]
     Route: 065

REACTIONS (2)
  - CARDIAC FAILURE CONGESTIVE [None]
  - DRUG INEFFECTIVE [None]
